FAERS Safety Report 18752371 (Version 1)
Quarter: 2021Q1

REPORT INFORMATION
  Report Type: Spontaneous
  Country: US (occurrence: US)
  Receive Date: 20210118
  Receipt Date: 20210118
  Transmission Date: 20210419
  Serious: No
  Sender: FDA-Public Use
  Company Number: US-FOUNDATIONCONSUMERHC-2020-US-025396

PATIENT
  Age: 18 Year
  Sex: Female
  Weight: 78.93 kg

DRUGS (2)
  1. PLAN B ONE?STEP [Suspect]
     Active Substance: LEVONORGESTREL
     Indication: POST COITAL CONTRACEPTION
     Dosage: 1.5 MG TABLET ONCE
     Route: 048
     Dates: start: 20201026, end: 20201026
  2. UNSPECIFIED ANTIBIOTIC [Suspect]
     Active Substance: UNSPECIFIED INGREDIENT
     Dates: start: 20201212

REACTIONS (11)
  - Vaginal haemorrhage [Recovered/Resolved]
  - Depressed mood [Recovered/Resolved]
  - Dizziness [Recovered/Resolved]
  - Menstruation irregular [Not Recovered/Not Resolved]
  - Mood altered [Recovered/Resolved]
  - Fatigue [Recovered/Resolved]
  - Dysmenorrhoea [Recovered/Resolved]
  - Abdominal pain [Recovered/Resolved]
  - Constipation [Recovered/Resolved]
  - Vaginal discharge [Recovered/Resolved]
  - Nausea [Recovered/Resolved]

NARRATIVE: CASE EVENT DATE: 202011
